FAERS Safety Report 16518626 (Version 1)
Quarter: 2019Q3

REPORT INFORMATION
  Report Type: Spontaneous
  Country: CA (occurrence: CA)
  Receive Date: 20190702
  Receipt Date: 20190702
  Transmission Date: 20191004
  Serious: Yes (Hospitalization, Disabling)
  Sender: FDA-Public Use
  Company Number: CA-APOTEX-2019AP017322

PATIENT
  Age: 64 Year
  Sex: Male

DRUGS (1)
  1. APO-LITHIUM CARBONATE [Suspect]
     Active Substance: LITHIUM CARBONATE
     Indication: PRODUCT USED FOR UNKNOWN INDICATION
     Dosage: 900 MG, UNK
     Route: 065
     Dates: start: 1992

REACTIONS (2)
  - Tremor [Recovered/Resolved]
  - Speech disorder [Recovered/Resolved]
